FAERS Safety Report 8851307 (Version 1)
Quarter: 2012Q4

REPORT INFORMATION
  Report Type: 
  Country: GB (occurrence: GB)
  Receive Date: 20121020
  Receipt Date: 20121020
  Transmission Date: 20130627
  Serious: Yes (Hospitalization, Other)
  Sender: FDA-Public Use
  Company Number: GB-009507513-1210GBR006232

PATIENT
  Age: 26 Year
  Sex: Female
  Weight: 47 kg

DRUGS (4)
  1. MIRTAZAPINE [Suspect]
     Indication: ANXIETY
     Dosage: 15 mg, UNK
     Route: 048
     Dates: end: 20120926
  2. MIRTAZAPINE [Suspect]
     Indication: DEPRESSION
  3. DIAZEPAM [Concomitant]
  4. SERTRALINE HYDROCHLORIDE [Concomitant]
     Dosage: 50 mg, UNK

REACTIONS (3)
  - Electrocardiogram QT prolonged [Recovered/Resolved]
  - Seizure like phenomena [Recovered/Resolved]
  - Syncope [Recovered/Resolved]
